FAERS Safety Report 15598929 (Version 6)
Quarter: 2019Q1

REPORT INFORMATION
  Report Type: Spontaneous
  Country: US (occurrence: US)
  Receive Date: 20181108
  Receipt Date: 20190218
  Transmission Date: 20190417
  Serious: No
  Sender: FDA-Public Use
  Company Number: US-PFIZER INC-2018457713

PATIENT
  Age: 40 Year
  Sex: Female
  Weight: 82.55 kg

DRUGS (6)
  1. LYRICA [Suspect]
     Active Substance: PREGABALIN
     Indication: THROMBOSIS
     Dosage: 150 MG, 2X/DAY
     Dates: start: 201807
  2. LYRICA [Suspect]
     Active Substance: PREGABALIN
     Indication: RADICULOPATHY
     Dosage: 200 MG, 2X/DAY
     Route: 048
     Dates: start: 201810
  3. LYRICA [Suspect]
     Active Substance: PREGABALIN
     Dosage: 200 MG, 2X/DAY
     Route: 048
     Dates: start: 2016
  4. LYRICA [Suspect]
     Active Substance: PREGABALIN
     Dosage: 800 MG, DAILY (TAKING 4 PILLS INSTEAD OF 2 DAILY OF THE 200MG)
     Route: 048
  5. LYRICA [Suspect]
     Active Substance: PREGABALIN
     Indication: DEEP VEIN THROMBOSIS
     Dosage: 75 MG, 2X/DAY
     Dates: start: 201705, end: 201807
  6. LYRICA [Suspect]
     Active Substance: PREGABALIN
     Indication: COMPLEX REGIONAL PAIN SYNDROME
     Dosage: 175 MG, UNK
     Route: 048

REACTIONS (7)
  - Vomiting [Unknown]
  - Overdose [Unknown]
  - Injury [Unknown]
  - Eating disorder [Unknown]
  - Chills [Unknown]
  - Withdrawal syndrome [Unknown]
  - Malaise [Unknown]

NARRATIVE: CASE EVENT DATE: 2018
